FAERS Safety Report 12543280 (Version 1)
Quarter: 2016Q3

REPORT INFORMATION
  Report Type: Spontaneous
  Country: US (occurrence: US)
  Receive Date: 20160711
  Receipt Date: 20160711
  Transmission Date: 20161109
  Serious: No
  Sender: FDA-Public Use
  Company Number: US-BIOGEN-2016BI00260947

PATIENT
  Sex: Female

DRUGS (1)
  1. AVONEX [Suspect]
     Active Substance: INTERFERON BETA-1A
     Indication: MULTIPLE SCLEROSIS
     Route: 030
     Dates: start: 20050819, end: 20060201

REACTIONS (4)
  - Influenza [Recovered/Resolved]
  - Myalgia [Recovered/Resolved]
  - Adverse drug reaction [Recovered/Resolved]
  - Alopecia [Recovered/Resolved]
